FAERS Safety Report 4781537-2 (Version None)
Quarter: 2005Q3

REPORT INFORMATION
  Report Type: 
  Country: None (occurrence: None)
  Receive Date: 20050928
  Receipt Date: 20050630
  Transmission Date: 20060218
  Serious: Yes (Other)
  Sender: FDA-Public Use
  Company Number: US-ROCHE-409403

PATIENT
  Age: 66 Year
  Sex: Female
  Weight: 55.2 kg

DRUGS (29)
  1. IBANDRONIC ACID [Suspect]
     Indication: OSTEOPOROSIS POSTMENOPAUSAL
     Dosage: DATE OF DOSE PRIOR TO EVENT ON 2 JUNE 2005
     Route: 048
     Dates: start: 20050602, end: 20050629
  2. PREDNISONE [Suspect]
     Indication: DRUG USE FOR UNKNOWN INDICATION
     Route: 065
     Dates: start: 20050427
  3. PREDNISONE [Suspect]
     Route: 065
     Dates: start: 19830615, end: 20050426
  4. ARAVA [Suspect]
     Indication: DRUG USE FOR UNKNOWN INDICATION
     Route: 065
     Dates: start: 20050507
  5. VITAMIN E [Concomitant]
     Dates: start: 20040115
  6. ASCORBIC ACID [Concomitant]
     Dates: start: 20000615
  7. MULTIVITAMIN NOS [Concomitant]
     Dates: start: 19650615
  8. CALCIUM CITRATE/VITAMIN D [Concomitant]
     Dosage: DOSE REPORTED AS 500MG AND 200MG DRUG NAME WAS REPORTED AS CALCIUM CITRATE + D
     Dates: start: 19830615
  9. PAXIL [Concomitant]
     Dates: start: 20000615
  10. HYDROCODONE BITARTRATE + ACETAMINOPHEN [Concomitant]
     Dosage: REPORTED AS 22.5/250
     Dates: start: 20030615
  11. TRAZODONE [Concomitant]
     Dosage: REPORTED TRADE NAME WAS TROZADONE
     Dates: start: 19830615
  12. CLONAZEPAM [Concomitant]
     Dates: start: 20041015
  13. SPIRONOLACTONE [Concomitant]
     Dates: start: 20040115
  14. PLAQUENIL [Concomitant]
     Dates: start: 19830615
  15. BUMETANIDE [Concomitant]
     Dosage: REPORTED DRUG NAME WAS BUMETAMIDE
     Dates: start: 19820615
  16. COREG [Concomitant]
     Dates: start: 20040115
  17. LISINOPRIL [Concomitant]
     Dates: start: 20040115
  18. ACIPHEX [Concomitant]
     Dates: start: 20030615
  19. ASPIRIN [Concomitant]
     Dates: start: 20040115
  20. ZELNORM [Concomitant]
     Dates: start: 20041115
  21. ALLOPURINOL [Concomitant]
     Dates: start: 20041015
  22. INDOMETHACIN [Concomitant]
     Dates: start: 20041015
  23. POTASSIUM CL [Concomitant]
     Dosage: REPORTED AS POTASSIUM CL ER
     Dates: start: 20041015
  24. ALBUTEROL [Concomitant]
     Dates: start: 20040115
  25. IPRATROPIUM BROMIDE [Concomitant]
     Dates: start: 20040115
  26. PRAVACHOL [Concomitant]
     Dates: start: 20040815
  27. AMMONIUM LACTATE [Concomitant]
     Dosage: REPORTED AS AMMONIUM LACTATE CR. 12% TOTAL DAILY DOSE REPORTED AS 2 APPLICATIONS
     Dates: start: 20041015
  28. UNSPECIFIED DRUG [Concomitant]
     Dosage: DRUG NAME WAS REPORTED AS RENOVA TRETINAN CR. 0.08% TOTAL DAILY DOSE REPORTED AS 2 APPLICATIONS
     Dates: start: 20041015
  29. BIAXIN [Concomitant]
     Dates: start: 20050603, end: 20050613

REACTIONS (4)
  - ABDOMINAL DISTENSION [None]
  - DYSPNOEA [None]
  - FAECES DISCOLOURED [None]
  - NAUSEA [None]
